FAERS Safety Report 18365582 (Version 2)
Quarter: 2021Q1

REPORT INFORMATION
  Report Type: Spontaneous
  Country: US (occurrence: US)
  Receive Date: 20201009
  Receipt Date: 20210129
  Transmission Date: 20210419
  Serious: No
  Sender: FDA-Public Use
  Company Number: US-SUNOVION-2020SUN002830

PATIENT
  Age: 45 Year
  Sex: Female

DRUGS (2)
  1. LATUDA [Suspect]
     Active Substance: LURASIDONE HYDROCHLORIDE
     Indication: BIPOLAR DISORDER
     Dosage: 20 MG
     Route: 048
     Dates: start: 20200921
  2. COGENTIN [Concomitant]
     Active Substance: BENZTROPINE MESYLATE

REACTIONS (5)
  - Abnormal dreams [Unknown]
  - Dysphonia [Unknown]
  - Vaginal haemorrhage [Unknown]
  - Dry mouth [Unknown]
  - Therapeutic response unexpected [Unknown]
